FAERS Safety Report 7579089-7 (Version None)
Quarter: 2011Q2

REPORT INFORMATION
  Report Type: 
  Country: None (occurrence: None)
  Receive Date: 20110628
  Receipt Date: 20110614
  Transmission Date: 20111010
  Serious: Yes (Other)
  Sender: FDA-Public Use
  Company Number: GB-BAYER-2011-052673

PATIENT
  Age: 81 Year
  Sex: Female

DRUGS (1)
  1. CLOTRIMAZOLE [Suspect]
     Dosage: UNK
     Dates: start: 20110101

REACTIONS (3)
  - LYMPHADENOPATHY [None]
  - DYSPNOEA [None]
  - DYSPHAGIA [None]
